FAERS Safety Report 23178319 (Version 1)
Quarter: 2023Q4

REPORT INFORMATION
  Report Type: Spontaneous
  Country: IT (occurrence: IT)
  Receive Date: 20231113
  Receipt Date: 20231113
  Transmission Date: 20240110
  Serious: Yes (Other)
  Sender: FDA-Public Use
  Company Number: IT-ROCHE-3434515

PATIENT
  Age: 80 Year
  Sex: Male
  Weight: 74 kg

DRUGS (15)
  1. BENDAMUSTINE HYDROCHLORIDE [Suspect]
     Active Substance: BENDAMUSTINE HYDROCHLORIDE
     Indication: Follicular lymphoma
     Dosage: UNK
     Route: 065
     Dates: start: 20191022, end: 20210618
  2. PREDNISONE [Suspect]
     Active Substance: PREDNISONE
     Indication: Follicular lymphoma
     Dosage: 5 CYCLES OF OBINUTUZUMAB-CHOP
     Route: 065
     Dates: start: 20211122, end: 20220328
  3. OBINUTUZUMAB [Suspect]
     Active Substance: OBINUTUZUMAB
     Indication: Follicular lymphoma
     Dosage: 5 CYCLES OF OBINUTUZUMAB-CHOP
     Route: 042
     Dates: start: 20211122, end: 20220328
  4. OBINUTUZUMAB [Suspect]
     Active Substance: OBINUTUZUMAB
     Dosage: 1000 MILLIGRAM (1ST CYCLE DAY 4SF 250 ML)
     Route: 042
     Dates: start: 20211125
  5. OBINUTUZUMAB [Suspect]
     Active Substance: OBINUTUZUMAB
     Dosage: 1000 MILLIGRAM (1ST CYCLE DAY 12SF 250 ML)
     Route: 042
     Dates: start: 20211201
  6. OBINUTUZUMAB [Suspect]
     Active Substance: OBINUTUZUMAB
     Dosage: 1000 MILLIGRAM (2ND CYCLE DAY 1SF 250 ML)
     Route: 042
     Dates: start: 20211222
  7. OBINUTUZUMAB [Suspect]
     Active Substance: OBINUTUZUMAB
     Dosage: 1000 MILLIGRAM (3RD CYCLE DAY 1SF 250 ML)
     Route: 042
     Dates: start: 20220112
  8. OBINUTUZUMAB [Suspect]
     Active Substance: OBINUTUZUMAB
     Dosage: 1000 MILLIGRAM (4TH CYCLE DAY 1SF 250 ML)
     Route: 042
     Dates: start: 20220202
  9. OBINUTUZUMAB [Suspect]
     Active Substance: OBINUTUZUMAB
     Dosage: 1000 MILLIGRAM (5TH CYCLE DAY 1SF 250 ML)
     Route: 042
     Dates: start: 20220328
  10. OBINUTUZUMAB [Suspect]
     Active Substance: OBINUTUZUMAB
     Dosage: UNK
     Route: 065
  11. CYCLOPHOSPHAMIDE [Suspect]
     Active Substance: CYCLOPHOSPHAMIDE
     Indication: Follicular lymphoma
     Dosage: 5 CYCLES OF OBINUTUZUMAB-CHOP
     Route: 065
     Dates: start: 20211122, end: 20220328
  12. VINCRISTINE [Suspect]
     Active Substance: VINCRISTINE
     Indication: Follicular lymphoma
     Dosage: 5 CYCLES OF OBINUTUZUMAB-CHOP
     Route: 065
     Dates: start: 20211122, end: 20220328
  13. DOXORUBICIN [Suspect]
     Active Substance: DOXORUBICIN
     Indication: Follicular lymphoma
     Dosage: 5 CYCLES OF OBINUTUZUMAB-CHOP
     Route: 065
     Dates: start: 20211122, end: 20220328
  14. RITUXIMAB [Suspect]
     Active Substance: RITUXIMAB
     Indication: Follicular lymphoma
     Dosage: UNK
     Route: 065
     Dates: start: 20191022, end: 20210618
  15. IDELALISIB [Suspect]
     Active Substance: IDELALISIB
     Indication: Follicular lymphoma
     Dosage: UNK
     Route: 065
     Dates: start: 20221117, end: 20231013

REACTIONS (3)
  - Neutropenia [Recovered/Resolved]
  - Thrombocytopenia [Recovered/Resolved]
  - Off label use [Unknown]

NARRATIVE: CASE EVENT DATE: 20211209
